FAERS Safety Report 19079128 (Version 2)
Quarter: 2021Q3

REPORT INFORMATION
  Report Type: Report from Study
  Country: BR (occurrence: BR)
  Receive Date: 20210331
  Receipt Date: 20210701
  Transmission Date: 20211014
  Serious: Yes (Other)
  Sender: FDA-Public Use
  Company Number: NVSC2021BR072199

PATIENT
  Age: 11 Year
  Sex: Male

DRUGS (2)
  1. OMNITROPE [Suspect]
     Active Substance: SOMATROPIN
     Indication: GROWTH DISORDER
     Dosage: 1.0 MG, QD
     Route: 058
     Dates: start: 202009, end: 202102
  2. OMNITROPE [Suspect]
     Active Substance: SOMATROPIN
     Dosage: 1.0 MG (FIRST WEEK: EVERY OTHER DAY. SECOND WEEK: DAILY
     Route: 058
     Dates: start: 20210307

REACTIONS (6)
  - Hemihypertrophy [Unknown]
  - Inappropriate schedule of product administration [Unknown]
  - Foot fracture [Unknown]
  - Pain in extremity [Unknown]
  - Arthralgia [Unknown]
  - Musculoskeletal disorder [Unknown]

NARRATIVE: CASE EVENT DATE: 202101
